FAERS Safety Report 19506178 (Version 1)
Quarter: 2021Q3

REPORT INFORMATION
  Report Type: Other
  Country: US (occurrence: US)
  Receive Date: 20210708
  Receipt Date: 20210708
  Transmission Date: 20211014
  Serious: Yes (Death)
  Sender: FDA-Public Use
  Company Number: US-ROCHE-2865139

PATIENT
  Sex: Male

DRUGS (10)
  1. ROZLYTREK [Suspect]
     Active Substance: ENTRECTINIB
     Indication: NEOPLASM MALIGNANT
     Dosage: TAKE TWO CAPS BY MOUTH DAILY
     Route: 048
  2. TURMERIC [Concomitant]
     Active Substance: HERBALS\TURMERIC
  3. MULTIVITAMIN [Concomitant]
     Active Substance: VITAMINS
  4. ROZLYTREK [Suspect]
     Active Substance: ENTRECTINIB
     Indication: METASTASES TO BONE
  5. OXYCODONE [Concomitant]
     Active Substance: OXYCODONE
     Indication: DEEP VEIN THROMBOSIS
  6. ROZLYTREK [Suspect]
     Active Substance: ENTRECTINIB
     Indication: BRAIN NEOPLASM MALIGNANT
  7. PREDNISONE. [Concomitant]
     Active Substance: PREDNISONE
     Indication: CERVICAL RADICULOPATHY
  8. OXYCODONE AND ACETAMINOPHEN [Concomitant]
     Active Substance: ACETAMINOPHEN\OXYCODONE HYDROCHLORIDE
     Indication: CERVICAL RADICULOPATHY
  9. SIMBRINZA [Concomitant]
     Active Substance: BRIMONIDINE TARTRATE\BRINZOLAMIDE
  10. LIPITOR [Concomitant]
     Active Substance: ATORVASTATIN CALCIUM

REACTIONS (1)
  - Death [Fatal]
